FAERS Safety Report 26161322 (Version 1)
Quarter: 2025Q4

REPORT INFORMATION
  Report Type: Spontaneous
  Country: US (occurrence: US)
  Receive Date: 20251216
  Receipt Date: 20251216
  Transmission Date: 20260118
  Serious: No
  Sender: ALVOGEN
  Company Number: US-ALVOGEN-2025096232

PATIENT

DRUGS (1)
  1. FENTANYL [Suspect]
     Active Substance: FENTANYL
     Indication: Tumour pain
     Dosage: 75 MCG?5 PACK
     Route: 062

REACTIONS (2)
  - Application site rash [Recovering/Resolving]
  - Dermatitis contact [Unknown]
